FAERS Safety Report 10145582 (Version 2)
Quarter: 2014Q2

REPORT INFORMATION
  Report Type: Report from Study
  Country: CA (occurrence: CA)
  Receive Date: 20140501
  Receipt Date: 20140606
  Transmission Date: 20141212
  Serious: Yes (Other)
  Sender: FDA-Public Use
  Company Number: CA-JNJFOC-20140418159

PATIENT
  Age: 51 Year
  Sex: Female
  Weight: 54 kg

DRUGS (8)
  1. REMICADE [Suspect]
     Indication: CROHN^S DISEASE
     Route: 042
     Dates: start: 2011
  2. BENADRYL [Concomitant]
     Dosage: 50
     Route: 042
  3. TYLENOL [Concomitant]
     Route: 065
  4. PENTASA [Concomitant]
     Route: 065
  5. NEXIUM [Concomitant]
     Route: 065
  6. FENTANYL [Concomitant]
     Route: 065
  7. DILAUDID [Concomitant]
     Route: 065
  8. METHOTREXATE [Concomitant]
     Route: 065

REACTIONS (7)
  - Fistula [Unknown]
  - Incisional drainage [Unknown]
  - Surgery [Unknown]
  - Malaise [Unknown]
  - Migraine [Unknown]
  - Ear pain [Unknown]
  - Fatigue [Unknown]
